FAERS Safety Report 6803485-6 (Version None)
Quarter: 2010Q2

REPORT INFORMATION
  Report Type: 
  Country: None (occurrence: None)
  Receive Date: 20100628
  Receipt Date: 20100618
  Transmission Date: 20101027
  Serious: Yes (Hospitalization, Other)
  Sender: FDA-Public Use
  Company Number: US-JNJFOC-20100112313

PATIENT
  Sex: Male

DRUGS (3)
  1. LEVAQUIN [Suspect]
     Indication: CHRONIC OBSTRUCTIVE PULMONARY DISEASE
     Route: 048
  2. LEVAQUIN [Suspect]
     Indication: DRUG USE FOR UNKNOWN INDICATION
     Route: 042
  3. PREDNISONE [Suspect]
     Indication: POLYMYALGIA RHEUMATICA
     Route: 048

REACTIONS (5)
  - BURSITIS [None]
  - HAEMARTHROSIS [None]
  - SYNOVITIS [None]
  - TENDON RUPTURE [None]
  - TENDONITIS [None]
